FAERS Safety Report 5323075-4 (Version None)
Quarter: 2007Q2

REPORT INFORMATION
  Report Type: 
  Country: None (occurrence: None)
  Receive Date: 20070507
  Receipt Date: 20070426
  Transmission Date: 20071010
  Serious: Yes (Hospitalization)
  Sender: FDA-Public Use
  Company Number: SP01216

PATIENT
  Age: 58 Year
  Sex: Male

DRUGS (1)
  1. MOVIPRED (SOLUTION) [Suspect]
     Indication: COLONOSCOPY
     Dosage: ORAL
     Route: 048
     Dates: start: 20070401, end: 20070401

REACTIONS (1)
  - RECTAL ULCER HAEMORRHAGE [None]
